FAERS Safety Report 7769051-3 (Version None)
Quarter: 2011Q3

REPORT INFORMATION
  Report Type: 
  Country: None (occurrence: None)
  Receive Date: 20110922
  Receipt Date: 20110303
  Transmission Date: 20111222
  Serious: No
  Sender: FDA-Public Use
  Company Number: US-ASTRAZENECA-2011SE12016

PATIENT
  Age: 85 Year
  Sex: Female
  Weight: 65.8 kg

DRUGS (8)
  1. FUROSEMIDE [Concomitant]
  2. ZYPREXA [Concomitant]
  3. SEROQUEL XR [Suspect]
     Indication: DEMENTIA ALZHEIMER'S TYPE
     Route: 048
     Dates: start: 20100701, end: 20110302
  4. SEROQUEL XR [Suspect]
     Route: 048
     Dates: start: 20110303
  5. PHENYTOIN [Concomitant]
     Indication: CONVULSION
  6. CYMBALTA [Concomitant]
  7. KLOR-CON [Concomitant]
  8. PROMETHAZINE [Concomitant]

REACTIONS (10)
  - HALLUCINATION [None]
  - AGITATION [None]
  - WEIGHT DECREASED [None]
  - DELUSION [None]
  - INSOMNIA [None]
  - VIRAL INFECTION [None]
  - VOMITING [None]
  - DISORIENTATION [None]
  - DIARRHOEA [None]
  - OFF LABEL USE [None]
